FAERS Safety Report 8827718 (Version 1)
Quarter: 2012Q4

REPORT INFORMATION
  Report Type: 
  Country: US (occurrence: US)
  Receive Date: 20121008
  Receipt Date: 20121008
  Transmission Date: 20130627
  Serious: Yes (Other)
  Sender: FDA-Public Use
  Company Number: US-PFIZER INC-2012245807

PATIENT
  Age: 52 Year
  Sex: Male

DRUGS (1)
  1. COLESTID [Suspect]
     Indication: BLOOD CHOLESTEROL INCREASED
     Dosage: UNK
     Dates: start: 20080115, end: 20120815

REACTIONS (4)
  - Myocardial infarction [Unknown]
  - Hypersensitivity [Unknown]
  - Hypertension [Unknown]
  - Drug ineffective [Unknown]
